FAERS Safety Report 5731296-1 (Version None)
Quarter: 2008Q2

REPORT INFORMATION
  Report Type: 
  Country: None (occurrence: None)
  Receive Date: 20080508
  Receipt Date: 20080430
  Transmission Date: 20081010
  Serious: Yes (Disabling)
  Sender: FDA-Public Use
  Company Number: GB-RANBAXY-2008RR-14836

PATIENT

DRUGS (5)
  1. DILTIAZEM RPG 60MG COMPRIME [Suspect]
     Dosage: UNK
     Dates: start: 20080220, end: 20080307
  2. LOSARTAN RANBAXY 50MG COMPRIMIDOS EFG [Suspect]
     Indication: CEREBROVASCULAR DISORDER
     Dosage: 50 MG, QD
     Dates: start: 20080205, end: 20080307
  3. SIMVASTATIN [Suspect]
     Indication: ATRIAL FIBRILLATION
     Dosage: 40 MG, QD
     Dates: start: 20080205, end: 20080307
  4. WARFARIN SODIUM [Suspect]
     Indication: ATRIAL FIBRILLATION
     Dosage: UNK
     Dates: start: 20080325
  5. ASPIRIN [Concomitant]
     Dosage: 75 MG, UNK
     Dates: start: 20021010, end: 20080220

REACTIONS (2)
  - EYE INFLAMMATION [None]
  - RASH GENERALISED [None]
